FAERS Safety Report 6675689-7 (Version None)
Quarter: 2010Q2

REPORT INFORMATION
  Report Type: 
  Country: None (occurrence: None)
  Receive Date: 20100409
  Receipt Date: 20100330
  Transmission Date: 20101027
  Serious: Yes (Hospitalization)
  Sender: FDA-Public Use
  Company Number: IT-ELI_LILLY_AND_COMPANY-IT201003007888

PATIENT
  Sex: Female

DRUGS (5)
  1. CYMBALTA [Suspect]
     Indication: DEPRESSION
     Dosage: 30 MG, DAILY (1/D)
     Route: 048
     Dates: start: 20100203, end: 20100304
  2. FLECAINIDE ACETATE [Concomitant]
     Indication: PAROXYSMAL ARRHYTHMIA
     Dosage: 100 MG, UNKNOWN
     Route: 048
  3. IRBESARTAN [Concomitant]
     Indication: HYPERTENSION
     Dosage: 75 MG, UNKNOWN
     Route: 065
  4. PREGABALIN [Concomitant]
     Indication: PERIPHERAL MOTOR NEUROPATHY
     Dosage: 50 MG, UNKNOWN
     Route: 048
  5. ACETYLSALICYLIC ACID [Concomitant]
     Indication: THROMBOSIS PROPHYLAXIS
     Dosage: 100 MG, UNKNOWN
     Route: 048

REACTIONS (2)
  - HYPOKALAEMIA [None]
  - HYPONATRAEMIA [None]
